FAERS Safety Report 24160415 (Version 1)
Quarter: 2024Q3

REPORT INFORMATION
  Report Type: Report from Study
  Country: US (occurrence: None)
  Receive Date: 20240801
  Receipt Date: 20240801
  Transmission Date: 20241016
  Serious: Yes (Other)
  Sender: ASTRAZENECA
  Company Number: 2021A777706

PATIENT
  Sex: Male

DRUGS (1)
  1. BRILINTA [Suspect]
     Active Substance: TICAGRELOR
     Indication: Stent placement
     Route: 048
     Dates: start: 20210223

REACTIONS (6)
  - Fall [Recovered/Resolved]
  - Wound [Recovered/Resolved]
  - Fatigue [Not Recovered/Not Resolved]
  - Haemorrhage [Recovered/Resolved with Sequelae]
  - Amnesia [Not Recovered/Not Resolved]
  - Brain fog [Not Recovered/Not Resolved]
